FAERS Safety Report 18716355 (Version 1)
Quarter: 2021Q1

REPORT INFORMATION
  Report Type: Spontaneous
  Country: US (occurrence: US)
  Receive Date: 20210107
  Receipt Date: 20210107
  Transmission Date: 20210419
  Serious: No
  Sender: FDA-Public Use
  Company Number: None

PATIENT
  Sex: Male

DRUGS (2)
  1. DEGARELIX [Suspect]
     Active Substance: DEGARELIX
  2. BICALUTAMIDE. [Suspect]
     Active Substance: BICALUTAMIDE

REACTIONS (2)
  - Gynaecomastia [None]
  - Injection site reaction [None]
